FAERS Safety Report 10559828 (Version 1)
Quarter: 2014Q4

REPORT INFORMATION
  Report Type: Spontaneous
  Country: JP (occurrence: None)
  Receive Date: 20141030
  Receipt Date: 20141030
  Transmission Date: 20150529
  Serious: Yes (Hospitalization)
  Sender: FDA-Public Use
  Company Number: COR_00124_2014

PATIENT
  Age: 65 Year
  Sex: Female

DRUGS (7)
  1. IRINOTECAN (IRINOTECAN) [Suspect]
     Active Substance: IRINOTECAN
     Indication: OVARIAN CANCER RECURRENT
     Dosage: BODY X 2; 6 COURSE THERAPY
     Dates: start: 200607, end: 200610
  2. GEMCITABINE [Concomitant]
     Active Substance: GEMCITABINE\GEMCITABINE HYDROCHLORIDE
  3. CARBOPLATIN (CARBOPLATIN) [Suspect]
     Active Substance: CARBOPLATIN
     Indication: OVARIAN CANCER RECURRENT
     Dosage: BODY; INCREASED AFTER THREE COURSES; 12 COURSE THERAPY
     Dates: start: 200502, end: 200601
  4. RADIATION THERAPY 60GY/20 FR [Suspect]
     Active Substance: RADIATION THERAPY
     Indication: OVARIAN CANCER RECURRENT
     Dosage: 60 GY/ 20 FR
     Dates: start: 200704, end: 200705
  5. CISPLATIN (CISPLATIN) [Suspect]
     Active Substance: CISPLATIN
     Indication: OVARIAN CANCER RECURRENT
     Dosage: BODY
     Dates: start: 200704, end: 200705
  6. PACLITAXEL (PACLITAXEL) [Suspect]
     Active Substance: PACLITAXEL
     Indication: OVARIAN CANCER RECURRENT
     Dosage: BODY; INCREASED AFTER THREE COURSE; 12 COURSE THERAPY
     Dates: start: 200502, end: 200601
  7. DOCETAXEL. [Concomitant]
     Active Substance: DOCETAXEL

REACTIONS (4)
  - Myelodysplastic syndrome [None]
  - Neoplasm recurrence [None]
  - Cerebral infarction [None]
  - Tumour embolism [None]
